FAERS Safety Report 21265165 (Version 1)
Quarter: 2022Q3

REPORT INFORMATION
  Report Type: Spontaneous
  Country: US (occurrence: None)
  Receive Date: 20220826
  Receipt Date: 20220826
  Transmission Date: 20221027
  Serious: Yes (Hospitalization)
  Sender: FDA-Public Use
  Company Number: None

PATIENT
  Age: 63 Year
  Sex: Female
  Weight: 83 kg

DRUGS (5)
  1. RYBELSUS [Suspect]
     Active Substance: SEMAGLUTIDE
     Indication: Type 2 diabetes mellitus
     Dosage: FREQUENCY : DAILY;?
     Route: 048
     Dates: end: 20220824
  2. Metorpolol Tartrate [Concomitant]
  3. LEVOTHYROXINE [Concomitant]
     Active Substance: LEVOTHYROXINE
  4. VITAMIN D3 [Concomitant]
     Active Substance: CHOLECALCIFEROL
  5. EMPAGLIFLOZIN [Concomitant]
     Active Substance: EMPAGLIFLOZIN

REACTIONS (7)
  - Nausea [None]
  - Vomiting [None]
  - Polydipsia [None]
  - Diabetes insipidus [None]
  - Vaginal discharge [None]
  - Blood glucose increased [None]
  - Diabetic ketoacidosis [None]

NARRATIVE: CASE EVENT DATE: 20220824
